FAERS Safety Report 12570279 (Version 2)
Quarter: 2016Q3

REPORT INFORMATION
  Report Type: Spontaneous
  Country: BR (occurrence: BR)
  Receive Date: 20160719
  Receipt Date: 20160906
  Transmission Date: 20161109
  Serious: Yes (Other)
  Sender: FDA-Public Use
  Company Number: BR-PFIZER INC-2016339822

PATIENT
  Age: 72 Year
  Sex: Female
  Weight: 81 kg

DRUGS (2)
  1. AZOPT [Concomitant]
     Active Substance: BRINZOLAMIDE
     Indication: GLAUCOMA
     Dosage: 1 DROP EACH EYE IN THE AFTERNOON
     Route: 047
     Dates: start: 201605
  2. XALATAN [Suspect]
     Active Substance: LATANOPROST
     Indication: GLAUCOMA
     Dosage: 1 DROP (1.5 MCG OF LATANOPROST) EACH EYE AT NIGHT
     Route: 047
     Dates: start: 201605

REACTIONS (1)
  - Cataract [Unknown]
